FAERS Safety Report 15302669 (Version 2)
Quarter: 2018Q4

REPORT INFORMATION
  Report Type: Spontaneous
  Country: US (occurrence: US)
  Receive Date: 20180821
  Receipt Date: 20181126
  Transmission Date: 20190204
  Serious: Yes (Hospitalization, Disabling, Other)
  Sender: FDA-Public Use
  Company Number: US-OTSUKA-2018_022657

PATIENT
  Age: 46 Year
  Sex: Female

DRUGS (6)
  1. ABILIFY [Suspect]
     Active Substance: ARIPIPRAZOLE
     Indication: PSYCHOTIC DISORDER
  2. ABILIFY [Suspect]
     Active Substance: ARIPIPRAZOLE
     Indication: OBSESSIVE-COMPULSIVE DISORDER
  3. ABILIFY [Suspect]
     Active Substance: ARIPIPRAZOLE
     Indication: PERSONALITY DISORDER
  4. ABILIFY [Suspect]
     Active Substance: ARIPIPRAZOLE
     Indication: INSOMNIA
  5. ABILIFY [Suspect]
     Active Substance: ARIPIPRAZOLE
     Indication: BIPOLAR DISORDER
     Dosage: 15 MG, QD
     Route: 065
     Dates: start: 201301, end: 201801
  6. ABILIFY [Suspect]
     Active Substance: ARIPIPRAZOLE
     Indication: MAJOR DEPRESSION

REACTIONS (19)
  - Injury [Unknown]
  - Anhedonia [Unknown]
  - Compulsive sexual behaviour [Recovered/Resolved]
  - Emotional distress [Unknown]
  - Suicide attempt [Recovered/Resolved]
  - Suicidal ideation [Recovered/Resolved]
  - Shoplifting [Recovered/Resolved]
  - Economic problem [Unknown]
  - Divorced [Unknown]
  - Product use in unapproved indication [Unknown]
  - Disability [Unknown]
  - Condition aggravated [Unknown]
  - Pain [Unknown]
  - Mental disorder [Unknown]
  - Theft [Recovered/Resolved]
  - Compulsive shopping [Recovered/Resolved]
  - Obsessive-compulsive disorder [Recovered/Resolved]
  - Anxiety [Unknown]
  - Gambling disorder [Recovered/Resolved]

NARRATIVE: CASE EVENT DATE: 201301
